FAERS Safety Report 17477186 (Version 5)
Quarter: 2020Q4

REPORT INFORMATION
  Report Type: Report from Study
  Country: CA (occurrence: CA)
  Receive Date: 20200228
  Receipt Date: 20201104
  Transmission Date: 20210113
  Serious: Yes (Other)
  Sender: FDA-Public Use
  Company Number: CA-JNJFOC-20190824670

PATIENT
  Age: 70 Year
  Sex: Female
  Weight: 87.09 kg

DRUGS (3)
  1. STELARA [Suspect]
     Active Substance: USTEKINUMAB
     Indication: PSORIASIS
     Route: 058
     Dates: start: 20100916
  2. STELARA [Suspect]
     Active Substance: USTEKINUMAB
     Route: 058
  3. STELARA [Suspect]
     Active Substance: USTEKINUMAB
     Route: 058

REACTIONS (7)
  - Arthritis [Recovering/Resolving]
  - Restless legs syndrome [Recovering/Resolving]
  - Hypertension [Recovering/Resolving]
  - Respiratory disorder [Recovering/Resolving]
  - Diabetic foot [Recovering/Resolving]
  - Blood cholesterol increased [Recovering/Resolving]
  - Rhinorrhoea [Recovered/Resolved]

NARRATIVE: CASE EVENT DATE: 20200512
